FAERS Safety Report 6792798-2 (Version None)
Quarter: 2010Q2

REPORT INFORMATION
  Report Type: 
  Country: None (occurrence: None)
  Receive Date: 20100624
  Receipt Date: 20081006
  Transmission Date: 20101027
  Serious: No
  Sender: FDA-Public Use
  Company Number: US-PFIZER INC-2008084045

PATIENT
  Sex: Female
  Weight: 18.636 kg

DRUGS (1)
  1. GENOTROPIN [Suspect]
     Indication: SMALL FOR DATES BABY
     Dates: start: 20081001

REACTIONS (1)
  - INJECTION SITE HAEMORRHAGE [None]
